FAERS Safety Report 18900764 (Version 1)
Quarter: 2021Q1

REPORT INFORMATION
  Report Type: Spontaneous
  Country: US (occurrence: US)
  Receive Date: 20210216
  Receipt Date: 20210216
  Transmission Date: 20210420
  Serious: No
  Sender: FDA-Public Use
  Company Number: US-SA-2021SA051736

PATIENT
  Sex: Female

DRUGS (13)
  1. DUPIXENT [Suspect]
     Active Substance: DUPILUMAB
     Indication: PSORIASIS
     Dosage: 300 MG, QOW
     Route: 058
     Dates: end: 202012
  2. DUPIXENT [Suspect]
     Active Substance: DUPILUMAB
     Indication: DERMATITIS ATOPIC
  3. TRIAMCINOLONE ACETONIDE. [Concomitant]
     Active Substance: TRIAMCINOLONE ACETONIDE
  4. SOOTHE+COOL PROTECT [Concomitant]
  5. DUPIXENT [Suspect]
     Active Substance: DUPILUMAB
     Indication: RHINITIS
  6. EUCRISA [Concomitant]
     Active Substance: CRISABOROLE
  7. FISH OIL [Concomitant]
     Active Substance: FISH OIL
  8. LOTEMAX [Concomitant]
     Active Substance: LOTEPREDNOL ETABONATE
  9. NASONEX [Concomitant]
     Active Substance: MOMETASONE FUROATE
  10. DUPIXENT [Suspect]
     Active Substance: DUPILUMAB
     Indication: ASTHMA
  11. CLOBETASOL [Concomitant]
     Active Substance: CLOBETASOL
  12. XIIDRA [Concomitant]
     Active Substance: LIFITEGRAST
  13. SOOTHE XP [Concomitant]
     Active Substance: LIGHT MINERAL OIL\MINERAL OIL

REACTIONS (5)
  - Erythema [Unknown]
  - Menstrual disorder [Unknown]
  - Menorrhagia [Unknown]
  - Product use in unapproved indication [Unknown]
  - Periorbital swelling [Unknown]

NARRATIVE: CASE EVENT DATE: 2020
